FAERS Safety Report 4905373-9 (Version None)
Quarter: 2006Q1

REPORT INFORMATION
  Report Type: 
  Country: None (occurrence: None)
  Receive Date: 20060207
  Receipt Date: 20060207
  Transmission Date: 20060701
  Serious: No
  Sender: FDA-Public Use
  Company Number: None

PATIENT
  Age: 84 Year
  Sex: Male
  Weight: 90.7194 kg

DRUGS (2)
  1. AVANDIA [Suspect]
     Dosage: 1 PILL EVERY DAY PO
     Route: 048
     Dates: start: 20040811, end: 20040910
  2. AVANDIA [Suspect]
     Dosage: 1 PILL EVERY PILL PO
     Route: 048
     Dates: start: 20040910, end: 20060128

REACTIONS (3)
  - OEDEMA PERIPHERAL [None]
  - VISION BLURRED [None]
  - WEIGHT INCREASED [None]
